FAERS Safety Report 23282042 (Version 1)
Quarter: 2023Q4

REPORT INFORMATION
  Report Type: Spontaneous
  Country: US (occurrence: None)
  Receive Date: 20231208
  Receipt Date: 20231208
  Transmission Date: 20240109
  Serious: Yes (Other)
  Sender: FDA-Public Use
  Company Number: None

PATIENT
  Age: 45 Year
  Sex: Female
  Weight: 89.55 kg

DRUGS (5)
  1. CLEARLAX [Suspect]
     Active Substance: POLYETHYLENE GLYCOL 3350
     Indication: Constipation
     Dosage: OTHER QUANTITY : 30 GRAMS;?FREQUENCY : DAILY;?
     Route: 048
  2. WELLBUTRIN [Suspect]
     Active Substance: BUPROPION HYDROCHLORIDE
  3. DEPO-PROVERA [Suspect]
     Active Substance: MEDROXYPROGESTERONE ACETATE
  4. IRON [Concomitant]
     Active Substance: IRON
  5. LEVOTHYROXINE [Concomitant]
     Active Substance: LEVOTHYROXINE

REACTIONS (9)
  - Flushing [None]
  - Throat irritation [None]
  - Tongue pruritus [None]
  - Oral pruritus [None]
  - Drug hypersensitivity [None]
  - Anxiety [None]
  - Dyspnoea [None]
  - Heart rate decreased [None]
  - Haemorrhage [None]

NARRATIVE: CASE EVENT DATE: 20231208
